FAERS Safety Report 7246184-1 (Version None)
Quarter: 2011Q1

REPORT INFORMATION
  Report Type: 
  Country: None (occurrence: None)
  Receive Date: 20110126
  Receipt Date: 20110121
  Transmission Date: 20110831
  Serious: Yes (Hospitalization)
  Sender: FDA-Public Use
  Company Number: A0909208A

PATIENT
  Age: 72 Year
  Sex: Female

DRUGS (1)
  1. RYTHMOL [Suspect]
     Dosage: 323MG UNKNOWN
     Route: 048

REACTIONS (1)
  - ADVERSE EVENT [None]
